FAERS Safety Report 16742422 (Version 1)
Quarter: 2019Q3

REPORT INFORMATION
  Report Type: Spontaneous
  Country: US (occurrence: US)
  Receive Date: 20190709
  Receipt Date: 20190709
  Transmission Date: 20191005
  Serious: Yes (Hospitalization)
  Sender: FDA-Public Use
  Company Number: None

PATIENT
  Age: 53 Year
  Sex: Male
  Weight: 105.9 kg

DRUGS (8)
  1. NUVIGIL [Suspect]
     Active Substance: ARMODAFINIL
     Dates: end: 20190322
  2. LISINOPRIL. [Concomitant]
     Active Substance: LISINOPRIL
  3. ATORVASTATIN [Concomitant]
     Active Substance: ATORVASTATIN
  4. DISULFIRAM. [Concomitant]
     Active Substance: DISULFIRAM
  5. AMLODOPINE [Concomitant]
     Active Substance: AMLODIPINE BESYLATE
  6. PANTOPRAZOLE [Concomitant]
     Active Substance: PANTOPRAZOLE
  7. POTASSIUM CHLORIDE. [Concomitant]
     Active Substance: POTASSIUM CHLORIDE
  8. HYDROCHLOROTHIAZIDE. [Concomitant]
     Active Substance: HYDROCHLOROTHIAZIDE

REACTIONS (10)
  - Hemianaesthesia [None]
  - Computerised tomogram abnormal [None]
  - Seizure [None]
  - Dysarthria [None]
  - Muscle twitching [None]
  - Speech disorder [None]
  - Disease progression [None]
  - Hemiparesis [None]
  - Aphasia [None]
  - Hypoaesthesia [None]

NARRATIVE: CASE EVENT DATE: 20190322
